FAERS Safety Report 7960668-X (Version None)
Quarter: 2011Q4

REPORT INFORMATION
  Report Type: 
  Country: None (occurrence: None)
  Receive Date: 20111206
  Receipt Date: 20111125
  Transmission Date: 20120403
  Serious: Yes (Hospitalization, Other)
  Sender: FDA-Public Use
  Company Number: FR-BRISTOL-MYERS SQUIBB COMPANY-16255333

PATIENT
  Age: 88 Year
  Sex: Female

DRUGS (6)
  1. STABLON [Concomitant]
     Indication: DEPRESSION
     Route: 048
     Dates: start: 20110601
  2. COUMADIN [Suspect]
     Indication: ANTICOAGULANT THERAPY
     Dosage: 1/D FOR 2 DAYS AND 1.5/D ON THE 3RD DAY,
     Dates: start: 19980101, end: 20110901
  3. POLYETHYLENE GLYCOL [Concomitant]
     Indication: CONSTIPATION
     Route: 048
     Dates: start: 20110501
  4. XANAX [Concomitant]
     Indication: ANXIETY
     Route: 048
     Dates: start: 20110501
  5. FERROUS SULFATE TAB [Concomitant]
     Indication: ANAEMIA
     Route: 048
     Dates: start: 20110501
  6. ACETAMINOPHEN [Concomitant]
     Indication: PAIN
     Route: 048

REACTIONS (3)
  - RECTAL HAEMORRHAGE [None]
  - HAEMOGLOBIN DECREASED [None]
  - INTERNATIONAL NORMALISED RATIO INCREASED [None]
